FAERS Safety Report 5191228-4 (Version None)
Quarter: 2006Q4

REPORT INFORMATION
  Report Type: 
  Country: None (occurrence: None)
  Receive Date: 20061226
  Receipt Date: 20061214
  Transmission Date: 20070319
  Serious: Yes (Other)
  Sender: FDA-Public Use
  Company Number: DE-NOVOPROD-259245

PATIENT
  Sex: Female

DRUGS (1)
  1. NORDITROPIN SIMPLEXX [Suspect]
     Indication: DRUG USE FOR UNKNOWN INDICATION
     Dosage: 1.8 MG, QD
     Route: 058

REACTIONS (2)
  - BACK PAIN [None]
  - BUTTOCK PAIN [None]
